FAERS Safety Report 15167194 (Version 1)
Quarter: 2018Q3

REPORT INFORMATION
  Report Type: Spontaneous
  Country: US (occurrence: US)
  Receive Date: 20180719
  Receipt Date: 20180719
  Transmission Date: 20181010
  Serious: Yes (Other)
  Sender: FDA-Public Use
  Company Number: US-009507513-1807USA005043

PATIENT
  Sex: Female
  Weight: 63.49 kg

DRUGS (1)
  1. NEXPLANON [Suspect]
     Active Substance: ETONOGESTREL
     Indication: CONTRACEPTION
     Dosage: 1 IMPLANT EVERY 3 YEAR IN THE LEFT ARM
     Route: 059
     Dates: start: 20180316

REACTIONS (8)
  - Vaginal laceration [Unknown]
  - Influenza [Unknown]
  - Menometrorrhagia [Unknown]
  - Vaginal infection [Unknown]
  - Fatigue [Unknown]
  - Vaginal haemorrhage [Unknown]
  - Vulvovaginal dryness [Unknown]
  - Nausea [Unknown]

NARRATIVE: CASE EVENT DATE: 2018
